FAERS Safety Report 11104506 (Version 1)
Quarter: 2015Q2

REPORT INFORMATION
  Report Type: Spontaneous
  Country: US (occurrence: US)
  Receive Date: 20150511
  Receipt Date: 20150511
  Transmission Date: 20150821
  Serious: Yes (Other)
  Sender: FDA-Public Use
  Company Number: US-ELI_LILLY_AND_COMPANY-US201505002948

PATIENT
  Sex: Female

DRUGS (3)
  1. LEVOTHROID [Concomitant]
     Active Substance: LEVOTHYROXINE SODIUM
     Indication: HYPOTHYROIDISM
  2. PROZAC [Suspect]
     Active Substance: FLUOXETINE HYDROCHLORIDE
     Indication: DEPRESSION
     Dosage: 20 MG, QD
     Route: 065
     Dates: start: 20020108
  3. PRENATAL VITAMINS                  /08195401/ [Concomitant]

REACTIONS (4)
  - Maternal exposure during pregnancy [Recovered/Resolved]
  - Prolonged rupture of membranes [Unknown]
  - Arrested labour [Recovered/Resolved]
  - Cephalo-pelvic disproportion [Recovered/Resolved]
